FAERS Safety Report 7979307-7 (Version None)
Quarter: 2011Q4

REPORT INFORMATION
  Report Type: 
  Country: None (occurrence: None)
  Receive Date: 20111201
  Receipt Date: 20111118
  Transmission Date: 20120403
  Serious: Yes (Death, Life-Threatening, Hospitalization)
  Sender: FDA-Public Use
  Company Number: 2008AL005884

PATIENT
  Age: 65 Year
  Sex: Male

DRUGS (22)
  1. NITROGLYCERIN [Concomitant]
  2. PROTONIX [Concomitant]
  3. ZOCOR [Concomitant]
  4. DIGOXIN [Suspect]
     Indication: CARDIAC FAILURE CONGESTIVE
     Dosage: 0.125 MG;QD;PO
     Route: 048
     Dates: start: 20071024, end: 20071101
  5. ALBUTEROL [Concomitant]
  6. FOLIC ACID [Concomitant]
  7. PULMICORT [Concomitant]
  8. XOPONEX [Concomitant]
  9. ZETIA [Concomitant]
  10. ALPRAZOLAM [Concomitant]
  11. ISOSORBIDE DINITRATE [Concomitant]
  12. LISINOPRIL [Concomitant]
  13. METOPROLOL TARTRATE [Concomitant]
  14. PREDNISONE [Concomitant]
  15. SPIRONOLACTONE [Concomitant]
  16. ADVAIR DISKUS 100/50 [Concomitant]
  17. ATROVENT [Concomitant]
  18. LASIX [Concomitant]
  19. HYDRALAZINE HCL [Concomitant]
  20. CARVEDILOL [Concomitant]
  21. PLAVIX [Concomitant]
  22. RANEXA [Concomitant]

REACTIONS (17)
  - CONFUSIONAL STATE [None]
  - NAUSEA [None]
  - MULTI-ORGAN FAILURE [None]
  - CARDIOGENIC SHOCK [None]
  - TOXICITY TO VARIOUS AGENTS [None]
  - MITRAL VALVE INCOMPETENCE [None]
  - LEFT VENTRICULAR HYPERTROPHY [None]
  - PAIN [None]
  - HYPOTENSION [None]
  - VISUAL IMPAIRMENT [None]
  - EMOTIONAL DISORDER [None]
  - DIARRHOEA [None]
  - CORONARY ARTERY DISEASE [None]
  - RESPIRATORY FAILURE [None]
  - INJURY [None]
  - ECONOMIC PROBLEM [None]
  - RENAL FAILURE [None]
